FAERS Safety Report 8826335 (Version 2)
Quarter: 2012Q4

REPORT INFORMATION
  Report Type: Report from Study
  Country: HK (occurrence: HK)
  Receive Date: 20121005
  Receipt Date: 20121105
  Transmission Date: 20130627
  Serious: Yes (Death)
  Sender: FDA-Public Use
  Company Number: HK-ROCHE-1141145

PATIENT
  Age: 75 Year
  Sex: Female
  Weight: 55.6 kg

DRUGS (22)
  1. VEMURAFENIB [Suspect]
     Indication: METASTATIC MALIGNANT MELANOMA
     Route: 048
     Dates: start: 20120921, end: 20120926
  2. ACTIFED COMPOUND LINCTUS [Concomitant]
     Indication: ANTITUSSIVE THERAPY
     Route: 048
     Dates: start: 20120924, end: 20120925
  3. XANAX [Concomitant]
     Indication: DYSPNOEA
  4. CODEINE [Concomitant]
     Indication: ANTITUSSIVE THERAPY
     Route: 048
     Dates: start: 20120920, end: 20120923
  5. LACTULOSE [Concomitant]
     Indication: CONSTIPATION
     Route: 048
     Dates: start: 20120924, end: 20120925
  6. METFORMIN [Concomitant]
     Indication: DIABETES MELLITUS
  7. METHADONE [Concomitant]
     Indication: PAIN
  8. METHADONE [Concomitant]
     Indication: COUGH
  9. PANTOLOC [Concomitant]
     Indication: GASTRITIS
     Route: 042
     Dates: start: 20120925, end: 20120927
  10. SENNA [Concomitant]
     Indication: CONSTIPATION
     Route: 048
     Dates: start: 20120912, end: 20120925
  11. SIMVASTATIN [Concomitant]
     Indication: LIPIDS INCREASED
     Route: 048
     Dates: start: 20120912, end: 20120925
  12. SIMVASTATIN [Concomitant]
     Indication: HYPERCHOLESTEROLAEMIA
  13. TRAMADOL [Concomitant]
     Indication: PAIN
  14. TAZOCIN [Concomitant]
     Indication: LOWER RESPIRATORY TRACT INFECTION
     Route: 042
     Dates: start: 20120925, end: 20120927
  15. PERINDOPRIL [Concomitant]
     Indication: HYPERTENSION
  16. PANADOL [Concomitant]
     Indication: PAIN
     Route: 048
     Dates: start: 20120913, end: 20120925
  17. GABAPENTIN [Concomitant]
     Indication: PAIN
     Route: 048
     Dates: start: 20120913, end: 20120924
  18. MORPHINE [Concomitant]
     Indication: PAIN
     Route: 048
     Dates: start: 20120919, end: 20120925
  19. PHENSEDYL [Concomitant]
     Indication: COUGH
     Route: 048
     Dates: start: 20120919, end: 20120924
  20. MAXOLON [Concomitant]
     Indication: PROPHYLAXIS OF NAUSEA AND VOMITING
     Route: 048
     Dates: start: 20120924, end: 20120925
  21. DEXAMETHASONE [Concomitant]
     Indication: DYSPNOEA
     Route: 048
     Dates: start: 20120925, end: 20120926
  22. HALOPERIDOL [Concomitant]
     Indication: AGITATION
     Route: 058
     Dates: start: 20120925, end: 20120926

REACTIONS (4)
  - Respiratory failure [Fatal]
  - Dyspnoea [Fatal]
  - Disease progression [Fatal]
  - Metastases to lung [Fatal]
